FAERS Safety Report 9944892 (Version 1)
Quarter: 2014Q1

REPORT INFORMATION
  Report Type: Spontaneous
  Country: US (occurrence: US)
  Receive Date: 20140303
  Receipt Date: 20140303
  Transmission Date: 20141002
  Serious: No
  Sender: FDA-Public Use
  Company Number: US-AMGEN-USASP2013072383

PATIENT
  Age: 52 Year
  Sex: Female
  Weight: 54.42 kg

DRUGS (5)
  1. ENBREL [Suspect]
     Indication: PRODUCT USED FOR UNKNOWN INDICATION
     Dosage: 50 MG, QWK
     Route: 058
  2. ROPINIROLE [Concomitant]
     Dosage: 0.25 MG, UNK
  3. METHYLPRED [Concomitant]
     Dosage: 4 MG, UNK
  4. ALPRAZOLAM [Concomitant]
     Dosage: 0.5 MG, UNK
  5. VITAMIN D                          /00107901/ [Concomitant]
     Dosage: 1000 UNIT, UNK

REACTIONS (7)
  - Myopathy [Unknown]
  - Pain in extremity [Unknown]
  - Muscular weakness [Unknown]
  - Injection site pain [Unknown]
  - Injection site reaction [Unknown]
  - Injection site urticaria [Unknown]
  - Injection site erythema [Unknown]
